FAERS Safety Report 4727609-X (Version None)
Quarter: 2005Q3

REPORT INFORMATION
  Report Type: 
  Country: None (occurrence: None)
  Receive Date: 20050728
  Receipt Date: 20050720
  Transmission Date: 20060218
  Serious: Yes (Hospitalization)
  Sender: FDA-Public Use
  Company Number: FR-BRISTOL-MYERS SQUIBB COMPANY-13047261

PATIENT
  Age: 76 Year
  Sex: Female

DRUGS (4)
  1. MUCOMYST [Suspect]
     Indication: BRONCHITIS
     Route: 048
     Dates: start: 20050502, end: 20050506
  2. JOSACINE [Suspect]
     Indication: BRONCHITIS
     Route: 048
     Dates: start: 20050502, end: 20050506
  3. EFFERALGAN CODEINE [Concomitant]
     Indication: ARTHROPATHY
     Dates: start: 20050423, end: 20050507
  4. AMOXICILLIN [Concomitant]
     Indication: ERYSIPELAS
     Dates: start: 20050423, end: 20050503

REACTIONS (4)
  - PRURITUS [None]
  - PURPURA [None]
  - RASH [None]
  - RASH PUSTULAR [None]
